FAERS Safety Report 7326369-6 (Version None)
Quarter: 2011Q1

REPORT INFORMATION
  Report Type: 
  Country: None (occurrence: None)
  Receive Date: 20110302
  Receipt Date: 20110217
  Transmission Date: 20110831
  Serious: Yes (Hospitalization)
  Sender: FDA-Public Use
  Company Number: PHHY2011JP13486

PATIENT
  Age: 79 Year
  Sex: Male

DRUGS (2)
  1. HANP [Concomitant]
  2. RASILEZ AMLO [Suspect]
     Indication: HYPERTENSION
     Route: 048

REACTIONS (1)
  - OLIGURIA [None]
